FAERS Safety Report 14538889 (Version 3)
Quarter: 2019Q1

REPORT INFORMATION
  Report Type: Spontaneous
  Country: US (occurrence: US)
  Receive Date: 20180216
  Receipt Date: 20190117
  Transmission Date: 20190417
  Serious: No
  Sender: FDA-Public Use
  Company Number: US-PFIZER INC-2018065179

PATIENT
  Age: 44 Year
  Sex: Female
  Weight: 107.94 kg

DRUGS (1)
  1. METRONIDAZOLE. [Suspect]
     Active Substance: METRONIDAZOLE
     Dosage: UNK

REACTIONS (3)
  - Rash [Unknown]
  - Throat tightness [Unknown]
  - Drug hypersensitivity [Unknown]
